FAERS Safety Report 9901909 (Version 1)
Quarter: 2014Q1

REPORT INFORMATION
  Report Type: Spontaneous
  Country: FR (occurrence: FR)
  Receive Date: 20140217
  Receipt Date: 20140217
  Transmission Date: 20141002
  Serious: Yes (Hospitalization)
  Sender: FDA-Public Use
  Company Number: FR-GLAXOSMITHKLINE-B0969306A

PATIENT
  Age: 85 Year
  Sex: Female

DRUGS (19)
  1. ALKERAN [Suspect]
     Indication: PLASMA CELL MYELOMA
     Dosage: 2MG SIX TIMES PER DAY
     Route: 048
     Dates: start: 20131128
  2. ARANESP [Suspect]
     Indication: ANAEMIA
     Dosage: 150MCG WEEKLY
     Route: 058
     Dates: end: 20140103
  3. VELCADE [Suspect]
     Indication: PLASMA CELL MYELOMA
     Route: 042
     Dates: start: 20131128
  4. CORTANCYL [Suspect]
     Indication: PLASMA CELL MYELOMA
     Dosage: 1TAB FIVE TIMES PER DAY
     Route: 048
     Dates: start: 20131128
  5. PLAVIX [Concomitant]
     Indication: PLASMA CELL MYELOMA
     Route: 048
  6. DEROXAT [Concomitant]
     Dosage: 20MG PER DAY
     Route: 048
  7. PARACETAMOL [Concomitant]
     Route: 048
  8. INEXIUM [Concomitant]
     Dosage: 40MG PER DAY
     Route: 048
  9. IMOVANE [Concomitant]
     Dosage: 7.5MG PER DAY
     Route: 048
  10. LANTUS [Concomitant]
     Dosage: 30IU IN THE MORNING
     Route: 058
  11. IMODIUM [Concomitant]
     Dosage: 2MG PER DAY
     Route: 048
  12. LESCOL [Concomitant]
     Dosage: 80MG PER DAY
     Route: 048
  13. TRIATEC [Concomitant]
     Dosage: 2.5MG PER DAY
     Route: 048
  14. LYRICA [Concomitant]
     Dosage: 25MG PER DAY
     Route: 048
  15. LACRIFLUID [Concomitant]
     Route: 047
  16. SMECTA [Concomitant]
     Route: 048
  17. AMLOR [Concomitant]
     Dosage: 10MG PER DAY
     Route: 048
  18. ACUPAN [Concomitant]
     Route: 030
  19. CALCIDOSE [Concomitant]
     Dosage: 500MG TWICE PER DAY
     Route: 048

REACTIONS (1)
  - Deep vein thrombosis [Recovering/Resolving]
